FAERS Safety Report 4699766-5 (Version None)
Quarter: 2005Q2

REPORT INFORMATION
  Report Type: 
  Country: None (occurrence: None)
  Receive Date: 20050623
  Receipt Date: 20050607
  Transmission Date: 20051028
  Serious: Yes (Hospitalization)
  Sender: FDA-Public Use
  Company Number: DSA_70660_2005

PATIENT
  Age: 50 Year
  Sex: Male

DRUGS (8)
  1. DARVOCET-N 100 [Suspect]
     Dosage: 12 TAB QDAY PO
     Route: 048
  2. AMBIEN [Suspect]
     Dosage: 10 MG QDAY PO
     Route: 048
     Dates: start: 20040105
  3. ATIVAN [Suspect]
     Indication: ANXIETY
     Dosage: 10 MG QDAY PO
     Route: 048
     Dates: start: 20040126
  4. SCIO-469/PLACEBO [Suspect]
     Indication: RHEUMATOID ARTHRITIS
     Dosage: 2 CAP TID PO
     Route: 048
     Dates: start: 20050216, end: 20050411
  5. SCIO-469/PLACEBO [Suspect]
     Indication: RHEUMATOID ARTHRITIS
     Dosage: 1 TAB QDAY PO
     Route: 048
     Dates: start: 20050216, end: 20050411
  6. PREDNISONE [Concomitant]
  7. EFFEXOR [Concomitant]
  8. MULTI-VITAMIN [Concomitant]

REACTIONS (6)
  - DEPRESSION [None]
  - DRUG ABUSER [None]
  - DRUG DETOXIFICATION [None]
  - DRUG WITHDRAWAL SYNDROME [None]
  - INTENTIONAL MISUSE [None]
  - PILOERECTION [None]
